FAERS Safety Report 23558502 (Version 5)
Quarter: 2025Q2

REPORT INFORMATION
  Report Type: Report from Study
  Country: ZA (occurrence: ZA)
  Receive Date: 20240223
  Receipt Date: 20250626
  Transmission Date: 20250716
  Serious: Yes (Hospitalization, Other)
  Sender: NOVARTIS
  Company Number: ZA-002147023-NVSC2024ZA035585

PATIENT
  Age: 24 Year
  Sex: Female

DRUGS (3)
  1. OFATUMUMAB [Suspect]
     Active Substance: OFATUMUMAB
     Indication: Multiple sclerosis
     Dosage: 20 MG, QMO
     Route: 058
     Dates: start: 20231027
  2. OFATUMUMAB [Suspect]
     Active Substance: OFATUMUMAB
     Indication: Relapsing-remitting multiple sclerosis
     Dosage: 20 MG, QMO
     Route: 058
  3. OFATUMUMAB [Suspect]
     Active Substance: OFATUMUMAB
     Dosage: 20 MG, QMO
     Route: 058

REACTIONS (8)
  - Multiple sclerosis relapse [Unknown]
  - Myelopathy [Unknown]
  - Alopecia [Unknown]
  - Blister [Unknown]
  - Influenza [Unknown]
  - Gait disturbance [Unknown]
  - Weight increased [Unknown]
  - Hair texture abnormal [Unknown]
